FAERS Safety Report 5807560-4 (Version None)
Quarter: 2008Q3

REPORT INFORMATION
  Report Type: 
  Country: None (occurrence: None)
  Receive Date: 20080711
  Receipt Date: 20080702
  Transmission Date: 20090109
  Serious: Yes (Death, Congenital Anomaly, Other)
  Sender: FDA-Public Use
  Company Number: US-JNJFOC-20080701616

PATIENT
  Sex: Female

DRUGS (3)
  1. IBUPROFEN TABLETS [Suspect]
     Indication: DRUG EXPOSURE DURING PREGNANCY
  2. OPIUM [Suspect]
     Indication: PAIN
  3. UNSPECIFIED MEDICATION [Suspect]
     Indication: PAIN

REACTIONS (4)
  - CONGENITAL OESOPHAGEAL ANOMALY [None]
  - PAIN [None]
  - PNEUMONIA [None]
  - PREMATURE BABY [None]
